FAERS Safety Report 25735574 (Version 1)
Quarter: 2025Q3

REPORT INFORMATION
  Report Type: Spontaneous
  Country: US (occurrence: None)
  Receive Date: 20250827
  Receipt Date: 20250827
  Transmission Date: 20251021
  Serious: Yes (Other)
  Sender: FDA-CTU
  Company Number: None

PATIENT
  Sex: Male

DRUGS (1)
  1. TUBERCULIN PURIFIED PROTEIN DERIVATIVE (MANTOUX) [Suspect]
     Active Substance: TUBERCULIN PURIFIED PROTEIN DERIVATIVE (MANTOUX)

REACTIONS (1)
  - Psoriasis [None]
